FAERS Safety Report 8392406-3 (Version None)
Quarter: 2012Q2

REPORT INFORMATION
  Report Type: 
  Country: None (occurrence: None)
  Receive Date: 20120529
  Receipt Date: 20120514
  Transmission Date: 20120825
  Serious: Yes (Life-Threatening)
  Sender: FDA-Public Use
  Company Number: GB-WATSON-2012-08119

PATIENT
  Age: 73 Year
  Sex: Male

DRUGS (2)
  1. QUINAPRIL [Suspect]
     Indication: HYPERTENSION
     Dosage: UNK
     Route: 048
     Dates: start: 20120201, end: 20120330
  2. OPTIRAY 160 [Suspect]
     Indication: COMPUTERISED TOMOGRAM
     Dosage: 100 ML, DAILY, OPITRAY 300MG 1/ML. ONE DOSE. INDICATION: CT SCAN CONTRAST
     Route: 042
     Dates: start: 20120326, end: 20120326

REACTIONS (3)
  - HYPERSENSITIVITY [None]
  - SWOLLEN TONGUE [None]
  - RASH ERYTHEMATOUS [None]
